FAERS Safety Report 6022316-8 (Version None)
Quarter: 2008Q4

REPORT INFORMATION
  Report Type: 
  Country: None (occurrence: None)
  Receive Date: 20081221
  Receipt Date: 20081221
  Transmission Date: 20090506
  Serious: Yes (Hospitalization)
  Sender: FDA-Public Use
  Company Number: None

PATIENT
  Age: 47 Year
  Sex: Male
  Weight: 77.1115 kg

DRUGS (2)
  1. CHANTIX [Suspect]
     Indication: SMOKING CESSATION THERAPY
     Dosage: 0.5 MG 2X DAY PO
     Route: 048
     Dates: start: 20081208, end: 20081214
  2. CHANTIX [Suspect]
     Dosage: 1 MG 2X DAY PO
     Route: 048
     Dates: start: 20081215, end: 20081215

REACTIONS (6)
  - ABDOMINAL DISTENSION [None]
  - BOWEL MOVEMENT IRREGULARITY [None]
  - DYSPEPSIA [None]
  - GASTROINTESTINAL DISORDER [None]
  - PAIN [None]
  - VOMITING [None]
